FAERS Safety Report 4389729-1 (Version None)
Quarter: 2004Q2

REPORT INFORMATION
  Report Type: 
  Country: None (occurrence: None)
  Receive Date: 20040629
  Receipt Date: 20030924
  Transmission Date: 20050107
  Serious: Yes (Hospitalization)
  Sender: FDA-Public Use
  Company Number: US-JNJFOC-20030704613

PATIENT
  Age: 61 Year
  Sex: Male
  Weight: 62.8685 kg

DRUGS (12)
  1. DURAGESIC [Suspect]
     Indication: CANCER PAIN
     Dosage: 50 UG/HR, 1 IN 72 HOUR, TRANSDERMAL
     Route: 062
     Dates: start: 20030623
  2. PREDNISONE TAB [Concomitant]
  3. GLUCOVANCE (GLIBOMET) TABLETS [Concomitant]
  4. ALTACE (RAMIPRIL) CAPSULES [Concomitant]
  5. TOPROL XL (METOPROLOL SUCCINATE) TABLETS [Concomitant]
  6. FOLIC ACID (FOLIC ACID) TABLETS [Concomitant]
  7. METHOTREXATE SODIUM (METHOTREXATE SODIUM) SOLUTION [Concomitant]
  8. NOVOLIN (INSULIN HUMAN INJECTION, ISOPHANE) SUSPENSION [Concomitant]
  9. ASPIRIN [Concomitant]
  10. PREVACID [Concomitant]
  11. ALLEGRA (FEXOFENADINE HYDROCHLORIDE) TABLETS [Concomitant]
  12. GUAIBID LA (GUAIFENESIN) TABLETS [Concomitant]

REACTIONS (4)
  - AGGRESSION [None]
  - ASTHENIA [None]
  - HALLUCINATION [None]
  - NAUSEA [None]
